FAERS Safety Report 6180867-X (Version None)
Quarter: 2009Q2

REPORT INFORMATION
  Report Type: 
  Country: None (occurrence: None)
  Receive Date: 20090506
  Receipt Date: 20090501
  Transmission Date: 20091009
  Serious: No
  Sender: FDA-Public Use
  Company Number: US-BAYER-200825683NA

PATIENT
  Age: 28 Year
  Sex: Female
  Weight: 115 kg

DRUGS (1)
  1. MIRENA [Suspect]
     Indication: CONTRACEPTION
     Dosage: 20 UG/DAY CONTINUOUS
     Route: 015
     Dates: start: 20070101, end: 20080501

REACTIONS (1)
  - PREGNANCY WITH CONTRACEPTIVE DEVICE [None]
